FAERS Safety Report 4932181-5 (Version None)
Quarter: 2006Q1

REPORT INFORMATION
  Report Type: 
  Country: None (occurrence: None)
  Receive Date: 20060228
  Receipt Date: 20060214
  Transmission Date: 20060701
  Serious: Yes (Death, Life-Threatening, Hospitalization, Other)
  Sender: FDA-Public Use
  Company Number: USA0511112548

PATIENT
  Age: 57 Year
  Sex: Female

DRUGS (8)
  1. CYMBALTA [Suspect]
     Indication: DIABETIC NEUROPATHY
     Dosage: 60 MG, DAILY (1/D),
     Dates: start: 20040801
  2. METFORMIN HCL [Concomitant]
  3. FLORINEF [Concomitant]
  4. LASIX [Concomitant]
  5. ALDACTONE [Concomitant]
  6. TENEX [Concomitant]
  7. MIDODRINE (MIDODRINE) [Concomitant]
  8. FENTANYL [Concomitant]

REACTIONS (12)
  - BACTERAEMIA [None]
  - CRYPTOGENIC CIRRHOSIS [None]
  - ENCEPHALOPATHY [None]
  - FALL [None]
  - FLUID RETENTION [None]
  - HEPATIC FAILURE [None]
  - MENTAL STATUS CHANGES [None]
  - PLATELET COUNT DECREASED [None]
  - SEPSIS [None]
  - STAPHYLOCOCCAL INFECTION [None]
  - URINARY TRACT INFECTION [None]
  - WEIGHT INCREASED [None]
